FAERS Safety Report 9521174 (Version 2)
Quarter: 2013Q4

REPORT INFORMATION
  Report Type: Spontaneous
  Country: US (occurrence: US)
  Receive Date: 20130913
  Receipt Date: 20131031
  Transmission Date: 20140711
  Serious: Yes (Other)
  Sender: FDA-Public Use
  Company Number: US-JNJFOC-20130903395

PATIENT
  Age: 75 Year
  Sex: Female

DRUGS (11)
  1. XARELTO [Suspect]
     Indication: DEEP VEIN THROMBOSIS
     Route: 048
     Dates: start: 20131016
  2. XARELTO [Suspect]
     Indication: DEEP VEIN THROMBOSIS
     Route: 048
     Dates: start: 20130812, end: 20130906
  3. COZAAR [Concomitant]
     Route: 065
  4. METOPROLOL [Concomitant]
     Route: 065
  5. LASIX [Concomitant]
     Route: 065
  6. POTASSIUM [Concomitant]
     Route: 065
  7. ZOCOR [Concomitant]
     Route: 065
  8. NEXIUM [Concomitant]
     Route: 065
  9. ASPIRIN [Concomitant]
     Route: 065
  10. CALCIUM [Concomitant]
     Route: 065
  11. VITAMIN D3 [Concomitant]
     Route: 065

REACTIONS (2)
  - Thrombosis [Not Recovered/Not Resolved]
  - Incorrect dose administered [Unknown]
